FAERS Safety Report 7604273-3 (Version None)
Quarter: 2011Q3

REPORT INFORMATION
  Report Type: 
  Country: None (occurrence: None)
  Receive Date: 20110712
  Receipt Date: 20110627
  Transmission Date: 20111222
  Serious: Yes (Other)
  Sender: FDA-Public Use
  Company Number: IR-WATSON-2011-10127

PATIENT
  Age: 18 Month
  Sex: Male

DRUGS (1)
  1. PREDNISOLONE [Suspect]
     Indication: HENOCH-SCHONLEIN PURPURA
     Dosage: 2 MG/KG, DAILY
     Route: 048

REACTIONS (2)
  - DRUG INEFFECTIVE [None]
  - DRUG DEPENDENCE [None]
